FAERS Safety Report 9226429 (Version 2)
Quarter: 2014Q3

REPORT INFORMATION
  Report Type: Report from Study
  Country: NL (occurrence: NL)
  Receive Date: 20130411
  Receipt Date: 20140804
  Transmission Date: 20150326
  Serious: Yes (Other)
  Sender: FDA-Public Use
  Company Number: PHHY2012NL112365

PATIENT
  Age: 50 Year
  Sex: Female

DRUGS (9)
  1. ZOMETA [Suspect]
     Active Substance: ZOLEDRONIC ACID
     Indication: METASTASES TO BONE
     Dosage: 4 MG/ 100 ML, ONCE PER 28 DAYS
     Route: 042
  2. VITAMIN D [Concomitant]
     Active Substance: CHOLECALCIFEROL
     Dosage: 400 IU, QD
  3. ZOMETA [Suspect]
     Active Substance: ZOLEDRONIC ACID
     Dosage: 4 MG/ 100 ML, ONCE PER 28 DAYS
     Route: 042
     Dates: start: 20121106
  4. ZOMETA [Suspect]
     Active Substance: ZOLEDRONIC ACID
     Dosage: 4 MG/ 100 ML, ONCE PER 28 DAYS
     Route: 042
     Dates: start: 20130318
  5. LEVOTHYROXINE [Concomitant]
     Active Substance: LEVOTHYROXINE
     Dosage: 212.5 MCG/ML, QD
  6. ZOMETA [Suspect]
     Active Substance: ZOLEDRONIC ACID
     Dosage: 4 MG/ 100 ML, ONCE PER 28 DAYS
     Route: 042
     Dates: start: 20121009
  7. LETROZOLE. [Concomitant]
     Active Substance: LETROZOLE
     Dosage: 2.5 MG, QD
  8. TRAMADOL [Concomitant]
     Active Substance: TRAMADOL
     Dosage: 50 MG, BID
  9. GOSERELIN [Concomitant]
     Active Substance: GOSERELIN
     Dosage: 3.6 MG, UNK
     Route: 058

REACTIONS (3)
  - Abscess jaw [Unknown]
  - Osteomyelitis [Unknown]
  - Tooth disorder [Recovered/Resolved]

NARRATIVE: CASE EVENT DATE: 20121201
